FAERS Safety Report 18142741 (Version 2)
Quarter: 2020Q3

REPORT INFORMATION
  Report Type: Spontaneous
  Country: GB (occurrence: GB)
  Receive Date: 20200813
  Receipt Date: 20200819
  Transmission Date: 20201104
  Serious: Yes (Hospitalization)
  Sender: FDA-Public Use
  Company Number: GB-TEVA-2020-GB-1814969

PATIENT
  Age: 58 Year
  Sex: Male

DRUGS (12)
  1. OCTREOTIDE. [Suspect]
     Active Substance: OCTREOTIDE
     Indication: VIPOMA
     Dosage: INFUSION
     Route: 042
  2. LOPERAMIDE [Suspect]
     Active Substance: LOPERAMIDE
     Indication: VIPOMA
     Route: 065
  3. HYDROCORTISONE. [Suspect]
     Active Substance: HYDROCORTISONE
     Indication: VIPOMA
     Route: 042
  4. TELOTRISTAT. [Suspect]
     Active Substance: TELOTRISTAT
     Indication: VIPOMA
     Route: 065
  5. ONDANSETRON [Suspect]
     Active Substance: ONDANSETRON
     Indication: VIPOMA
     Route: 065
  6. CODEINE [Suspect]
     Active Substance: CODEINE
     Indication: VIPOMA
     Route: 065
  7. CODEINE [Suspect]
     Active Substance: CODEINE
     Indication: DIARRHOEA
  8. HYDROCORTISONE. [Suspect]
     Active Substance: HYDROCORTISONE
     Indication: DIARRHOEA
  9. LOPERAMIDE [Suspect]
     Active Substance: LOPERAMIDE
     Indication: DIARRHOEA
  10. TELOTRISTAT. [Suspect]
     Active Substance: TELOTRISTAT
     Indication: DIARRHOEA
  11. OCTREOTIDE. [Suspect]
     Active Substance: OCTREOTIDE
     Indication: DIARRHOEA
  12. ONDANSETRON [Suspect]
     Active Substance: ONDANSETRON
     Indication: DIARRHOEA

REACTIONS (2)
  - Hypocalcaemia [Unknown]
  - Drug ineffective [Unknown]
